FAERS Safety Report 9146377 (Version 1)
Quarter: 2013Q1

REPORT INFORMATION
  Report Type: Spontaneous
  Country: GB (occurrence: GB)
  Receive Date: 20130307
  Receipt Date: 20130307
  Transmission Date: 20140127
  Serious: Yes (Other)
  Sender: FDA-Public Use
  Company Number: GB-UCBSA-079909

PATIENT
  Age: 41 Year
  Sex: Male

DRUGS (3)
  1. KEPPRA [Suspect]
     Indication: COMPLEX PARTIAL SEIZURES
     Dosage: 3000
  2. TEGRETOL [Concomitant]
     Indication: COMPLEX PARTIAL SEIZURES
     Dosage: 800
  3. TEGRETOL [Concomitant]
     Indication: COMPLEX PARTIAL SEIZURES
     Dosage: DEPLETED

REACTIONS (2)
  - Convulsion [Unknown]
  - Feeling abnormal [Unknown]
